FAERS Safety Report 9778554 (Version 6)
Quarter: 2015Q1

REPORT INFORMATION
  Report Type: Spontaneous
  Country: US (occurrence: None)
  Receive Date: 20131219
  Receipt Date: 20150130
  Transmission Date: 20150721
  Serious: Yes (Hospitalization)
  Sender: FDA-Public Use
  Company Number: 2013-US-004254

PATIENT
  Age: 42 Year
  Sex: Male

DRUGS (3)
  1. XYREM [Suspect]
     Active Substance: SODIUM OXYBATE
     Indication: NARCOLEPSY
     Dosage: 3 G, BID, ORAL
     Route: 048
     Dates: start: 200711, end: 2009
  2. LEXAPRO [Concomitant]
     Active Substance: ESCITALOPRAM OXALATE
  3. BUPROPION (BUPROPION HYDORCHLORIDE) [Concomitant]

REACTIONS (1)
  - Aortic valve replacement [None]

NARRATIVE: CASE EVENT DATE: 20141206
